FAERS Safety Report 18232472 (Version 1)
Quarter: 2020Q3

REPORT INFORMATION
  Report Type: Spontaneous
  Country: US (occurrence: US)
  Receive Date: 20200904
  Receipt Date: 20200904
  Transmission Date: 20201103
  Serious: Yes (Death)
  Sender: FDA-Public Use
  Company Number: None

PATIENT
  Age: 68 Year
  Sex: Female

DRUGS (10)
  1. MELATONIN [Concomitant]
     Active Substance: MELATONIN
  2. PROPOFOL. [Concomitant]
     Active Substance: PROPOFOL
  3. DEXAMETHAXONE [Concomitant]
  4. CEFEPIME [Concomitant]
     Active Substance: CEFEPIME HYDROCHLORIDE
  5. FENTANYL. [Concomitant]
     Active Substance: FENTANYL
  6. LEVOPHED [Concomitant]
     Active Substance: NOREPINEPHRINE BITARTRATE
  7. VANCOMYCIN [Concomitant]
     Active Substance: VANCOMYCIN
  8. REMDESIVIR. [Suspect]
     Active Substance: REMDESIVIR
     Dates: start: 20200822, end: 20200826
  9. LOVENOX [Concomitant]
     Active Substance: ENOXAPARIN SODIUM
  10. VERSED [Concomitant]
     Active Substance: MIDAZOLAM HYDROCHLORIDE

REACTIONS (1)
  - Death [None]

NARRATIVE: CASE EVENT DATE: 20200902
